FAERS Safety Report 8523134-9 (Version None)
Quarter: 2012Q3

REPORT INFORMATION
  Report Type: 
  Country: None (occurrence: None)
  Receive Date: 20120720
  Receipt Date: 20120717
  Transmission Date: 20120928
  Serious: Yes (Other)
  Sender: FDA-Public Use
  Company Number: US-PFIZER INC-2012118316

PATIENT
  Sex: Female
  Weight: 58.957 kg

DRUGS (3)
  1. GLIMEPIRIDE [Concomitant]
     Indication: DIABETES MELLITUS
     Dosage: UNK
  2. SUTENT [Suspect]
     Dosage: 25 MG, UNK
     Route: 048
  3. SUTENT [Suspect]
     Indication: HEPATIC NEOPLASM
     Dosage: 50 MG, 1X/DAY
     Route: 048
     Dates: start: 20120304

REACTIONS (1)
  - HYPERTENSION [None]
